FAERS Safety Report 5075296-6 (Version None)
Quarter: 2006Q3

REPORT INFORMATION
  Report Type: 
  Country: None (occurrence: None)
  Receive Date: 20060809
  Receipt Date: 20060119
  Transmission Date: 20061208
  Serious: No
  Sender: FDA-Public Use
  Company Number: US-AMGEN-US165770

PATIENT
  Sex: Female

DRUGS (1)
  1. EPOGEN [Suspect]
     Indication: DIALYSIS
     Route: 058
     Dates: start: 19980101

REACTIONS (4)
  - CHEST PAIN [None]
  - FURUNCLE [None]
  - LABILE BLOOD PRESSURE [None]
  - PRURITUS [None]
